FAERS Safety Report 5134892-8 (Version None)
Quarter: 2006Q4

REPORT INFORMATION
  Report Type: 
  Country: None (occurrence: None)
  Receive Date: 20061025
  Receipt Date: 20061016
  Transmission Date: 20070319
  Serious: Yes (Other)
  Sender: FDA-Public Use
  Company Number: US-BRISTOL-MYERS SQUIBB COMPANY-13551825

PATIENT
  Age: 14 Day
  Sex: Female

DRUGS (2)
  1. CARBOPLATIN [Suspect]
     Indication: RETINOBLASTOMA
  2. CRYOTHERAPY [Concomitant]

REACTIONS (2)
  - OPTIC ATROPHY [None]
  - OPTIC NERVE INJURY [None]
